FAERS Safety Report 5040343-4 (Version None)
Quarter: 2006Q2

REPORT INFORMATION
  Report Type: 
  Country: None (occurrence: None)
  Receive Date: 20060601
  Receipt Date: 20060306
  Transmission Date: 20061013
  Serious: No
  Sender: FDA-Public Use
  Company Number: 2005PV000667

PATIENT
  Age: 73 Year
  Sex: Male
  Weight: 80.7403 kg

DRUGS (10)
  1. BYETTA [Suspect]
     Indication: DIABETES MELLITUS NON-INSULIN-DEPENDENT
     Dosage: SEE IMAGE
     Route: 058
     Dates: start: 20050613, end: 20050712
  2. BYETTA [Suspect]
     Indication: DIABETES MELLITUS NON-INSULIN-DEPENDENT
     Dosage: SEE IMAGE
     Route: 058
     Dates: start: 20050713
  3. AMARYL [Concomitant]
  4. LISINOPRIL [Concomitant]
  5. ANTIDEPRESSANTS [Concomitant]
  6. DIURETICS [Concomitant]
  7. LANTUS [Concomitant]
  8. AVANDAMET [Concomitant]
  9. DIOVAN [Concomitant]
  10. CYMBALTA [Concomitant]

REACTIONS (13)
  - BLOOD GLUCOSE DECREASED [None]
  - DECREASED APPETITE [None]
  - DIARRHOEA [None]
  - DYSPEPSIA [None]
  - ERUCTATION [None]
  - FATIGUE [None]
  - FEELING COLD [None]
  - HEADACHE [None]
  - LACRIMATION INCREASED [None]
  - NAUSEA [None]
  - SNEEZING [None]
  - SOMNOLENCE [None]
  - WEIGHT DECREASED [None]
